FAERS Safety Report 9137500 (Version 1)
Quarter: 2013Q1

REPORT INFORMATION
  Report Type: Spontaneous
  Country: US (occurrence: US)
  Receive Date: 20130219
  Receipt Date: 20130219
  Transmission Date: 20140127
  Serious: No
  Sender: FDA-Public Use
  Company Number: US-BRISTOL-MYERS SQUIBB COMPANY-17148552

PATIENT
  Age: 43 Year
  Sex: Female
  Weight: 56.69 kg

DRUGS (1)
  1. ABATACEPT SUBQ INJECTION 125MG/ML [Suspect]
     Indication: RHEUMATOID ARTHRITIS
     Dosage: DATE OF LAST INJECTION:16OCT2012?PRESCRIPTION #:825197?INJECTION SOLUTION, 125MG/1ML
     Route: 058

REACTIONS (1)
  - Drug ineffective [Unknown]
